FAERS Safety Report 22028558 (Version 1)
Quarter: 2023Q1

REPORT INFORMATION
  Report Type: Spontaneous
  Country: US (occurrence: None)
  Receive Date: 20230223
  Receipt Date: 20230223
  Transmission Date: 20230418
  Serious: No
  Sender: FDA-Public Use
  Company Number: US-ROCHE-3231983

PATIENT
  Sex: Female
  Weight: 32.688 kg

DRUGS (2)
  1. NUTROPIN [Suspect]
     Active Substance: SOMATROPIN
     Indication: Product used for unknown indication
     Dosage: 10 MG/2 ML?EXPIRY DATE: 31/JAN/2024
     Route: 065
     Dates: start: 2021
  2. NUTROPIN [Suspect]
     Active Substance: SOMATROPIN

REACTIONS (2)
  - Device defective [Unknown]
  - Pain [Unknown]

NARRATIVE: CASE EVENT DATE: 20221101
